FAERS Safety Report 10079269 (Version 1)
Quarter: 2014Q2

REPORT INFORMATION
  Report Type: Spontaneous
  Country: IT (occurrence: IT)
  Receive Date: 20140415
  Receipt Date: 20140415
  Transmission Date: 20141212
  Serious: Yes (Death, Other)
  Sender: FDA-Public Use
  Company Number: PHHY2013IT005229

PATIENT
  Age: 43 Year
  Sex: Female

DRUGS (4)
  1. CICLOSPORIN [Suspect]
     Indication: CHORIORETINOPATHY
     Dosage: 200 MG, DAY
     Route: 062
  2. CICLOSPORIN [Suspect]
     Dosage: 300 MG, DAY
     Route: 062
  3. PREDNISONE [Suspect]
     Indication: VISUAL IMPAIRMENT
     Dosage: 25 MG, PER DAY
     Route: 062
     Dates: start: 2007
  4. PREDNISONE [Suspect]
     Dosage: 50 MG, PER DAY
     Route: 062
     Dates: start: 2007

REACTIONS (5)
  - Pulmonary mycosis [Fatal]
  - Central nervous system lymphoma [Unknown]
  - Blindness [Unknown]
  - Visual field defect [Unknown]
  - Drug ineffective [Unknown]
